FAERS Safety Report 4532216-8 (Version None)
Quarter: 2004Q4

REPORT INFORMATION
  Report Type: 
  Country: None (occurrence: None)
  Receive Date: 20041217
  Receipt Date: 20041115
  Transmission Date: 20050328
  Serious: Yes (Hospitalization)
  Sender: FDA-Public Use
  Company Number: EMR64300001-13

PATIENT
  Age: 68 Year
  Sex: Female

DRUGS (1)
  1. NIASPAN [Suspect]
     Indication: DYSLIPIDAEMIA
     Dosage: 1500 MG QD PO
     Route: 048
     Dates: start: 20040825, end: 20040919

REACTIONS (15)
  - ANGINA UNSTABLE [None]
  - ATRIAL FIBRILLATION [None]
  - CARDIAC FAILURE [None]
  - CEREBROVASCULAR ACCIDENT [None]
  - CHEST PAIN [None]
  - CORONARY ARTERY DISEASE [None]
  - DIABETES MELLITUS NON-INSULIN-DEPENDENT [None]
  - GOITRE [None]
  - HYPOTHYROIDISM [None]
  - MYOCARDIAL INFARCTION [None]
  - NEPHROPATHY [None]
  - POLYNEUROPATHY [None]
  - RENAL FAILURE [None]
  - TACHYCARDIA [None]
  - VENTRICULAR TACHYCARDIA [None]
